FAERS Safety Report 6750494-1 (Version None)
Quarter: 2010Q2

REPORT INFORMATION
  Report Type: 
  Country: None (occurrence: None)
  Receive Date: 20100527
  Receipt Date: 20100504
  Transmission Date: 20101027
  Serious: Yes (Hospitalization)
  Sender: FDA-Public Use
  Company Number: DSA_43104_2010

PATIENT
  Sex: Female

DRUGS (4)
  1. BUPROPION HCL [Suspect]
     Indication: DEPRESSION
     Dosage: (150 MG QD), (300 MG QD)
     Dates: start: 20090701, end: 20091101
  2. BUPROPION HCL [Suspect]
     Indication: DEPRESSION
     Dosage: (150 MG QD), (300 MG QD)
     Dates: start: 20091101
  3. SEROQUEL [Concomitant]
  4. LAMOTRIGINE [Concomitant]

REACTIONS (9)
  - AMNESIA [None]
  - FALL [None]
  - FLUID INTAKE REDUCED [None]
  - HEAD INJURY [None]
  - HYPOPHAGIA [None]
  - LOSS OF CONSCIOUSNESS [None]
  - MUSCLE TIGHTNESS [None]
  - MUSCULOSKELETAL STIFFNESS [None]
  - SYNCOPE [None]
